FAERS Safety Report 5083760-9 (Version None)
Quarter: 2006Q3

REPORT INFORMATION
  Report Type: 
  Country: None (occurrence: None)
  Receive Date: 20060818
  Receipt Date: 20020326
  Transmission Date: 20061208
  Serious: Yes (Death, Congenital Anomaly, Other)
  Sender: FDA-Public Use
  Company Number: FR-ABBOTT-02P-056-0190302-00

PATIENT
  Sex: Female
  Weight: 2.1 kg

DRUGS (19)
  1. FENOFIBRATE [Suspect]
     Indication: DRUG EXPOSURE DURING PREGNANCY
     Route: 065
  2. ISOPTIN [Suspect]
     Indication: DRUG EXPOSURE DURING PREGNANCY
     Route: 065
  3. PENTOXIFYLLINE [Suspect]
     Indication: DRUG EXPOSURE DURING PREGNANCY
     Route: 065
  4. FLUOXETINE HYDROCHLORIDE [Suspect]
     Indication: DRUG EXPOSURE DURING PREGNANCY
     Route: 065
  5. PERINDOPRIL ERBUMINE [Suspect]
     Indication: DRUG EXPOSURE DURING PREGNANCY
     Route: 065
  6. ALPRAZOLAM [Suspect]
     Indication: DRUG EXPOSURE DURING PREGNANCY
     Route: 065
  7. ASPIRIN [Suspect]
     Indication: DRUG EXPOSURE DURING PREGNANCY
     Route: 065
  8. DINOPROSTONE [Concomitant]
     Indication: DRUG USE FOR UNKNOWN INDICATION
  9. CEFOTAXIME [Concomitant]
     Indication: DRUG USE FOR UNKNOWN INDICATION
  10. AMPICILLIN [Concomitant]
     Indication: DRUG USE FOR UNKNOWN INDICATION
  11. AMIKACIN [Concomitant]
     Indication: DRUG USE FOR UNKNOWN INDICATION
  12. INSULIN INITARD NORDISK [Concomitant]
     Indication: DRUG EXPOSURE DURING PREGNANCY
     Route: 065
  13. ACTRAPID [Concomitant]
     Indication: DRUG EXPOSURE DURING PREGNANCY
     Route: 065
  14. ISOPHANE INSULIN [Concomitant]
     Indication: DRUG EXPOSURE DURING PREGNANCY
     Route: 065
  15. SOTALOL HYDROCHLORIDE [Concomitant]
     Indication: DRUG EXPOSURE DURING PREGNANCY
     Route: 065
  16. CLONIDINE [Concomitant]
     Indication: DRUG EXPOSURE DURING PREGNANCY
     Route: 065
  17. FUROSEMIDE [Concomitant]
     Indication: DRUG EXPOSURE DURING PREGNANCY
     Route: 065
  18. AMOXICILLIN [Concomitant]
     Indication: DRUG USE FOR UNKNOWN INDICATION
  19. CLAFULANIC ACID [Concomitant]
     Indication: DRUG USE FOR UNKNOWN INDICATION

REACTIONS (14)
  - BLOOD PRESSURE DECREASED [None]
  - BRADYCARDIA [None]
  - CARDIAC MURMUR [None]
  - CARDIOMYOPATHY [None]
  - CONGENITAL TRICUSPID VALVE ATRESIA [None]
  - CYANOSIS [None]
  - HEART DISEASE CONGENITAL [None]
  - HYPERTENSION NEONATAL [None]
  - MALAISE [None]
  - METABOLIC ACIDOSIS [None]
  - OEDEMA [None]
  - OXYGEN SATURATION DECREASED [None]
  - PALLOR [None]
  - VENTRICULAR FIBRILLATION [None]
